FAERS Safety Report 10044469 (Version 1)
Quarter: 2014Q1

REPORT INFORMATION
  Report Type: Spontaneous
  Country: ZA (occurrence: ZA)
  Receive Date: 20140328
  Receipt Date: 20140328
  Transmission Date: 20141002
  Serious: Yes (Other)
  Sender: FDA-Public Use
  Company Number: ZA-SA-2014SA034929

PATIENT
  Sex: Female
  Weight: 86 kg

DRUGS (1)
  1. CLEXANE [Suspect]
     Indication: PROPHYLAXIS
     Route: 058

REACTIONS (4)
  - Antiphospholipid syndrome [Unknown]
  - Cerebrovascular accident [Unknown]
  - Abortion induced [Unknown]
  - Exposure during pregnancy [Unknown]
